FAERS Safety Report 9411984 (Version 1)
Quarter: 2013Q2

REPORT INFORMATION
  Report Type: Spontaneous
  Country: US (occurrence: None)
  Receive Date: 20130513
  Receipt Date: 20130513
  Transmission Date: 20140414
  Serious: Yes (Other)
  Sender: FDA-Public Use
  Company Number: B0889633A

PATIENT
  Age: 68 Year
  Sex: Male

DRUGS (1)
  1. MELPHALAN [Suspect]
     Indication: MALIGNANT MELANOMA

REACTIONS (3)
  - Lymphoproliferative disorder [None]
  - Lymphoedema [None]
  - Anaplastic large-cell lymphoma [None]
